FAERS Safety Report 8165350-4 (Version None)
Quarter: 2012Q1

REPORT INFORMATION
  Report Type: 
  Country: None (occurrence: None)
  Receive Date: 20120222
  Receipt Date: 20120222
  Transmission Date: 20120608
  Serious: Yes (Other)
  Sender: FDA-Public Use
  Company Number: None

PATIENT
  Age: 12 Year
  Sex: Female

DRUGS (1)
  1. FLUOCINOLONE ACETONIDE [Suspect]
     Indication: DERMATITIS ATOPIC
     Dosage: BID DERMAL
     Dates: start: 20120216

REACTIONS (6)
  - RASH ERYTHEMATOUS [None]
  - BURNING SENSATION [None]
  - PRODUCT ODOUR ABNORMAL [None]
  - ECONOMIC PROBLEM [None]
  - PRODUCT SUBSTITUTION ISSUE [None]
  - DRUG INEFFECTIVE [None]
